FAERS Safety Report 5624503-7 (Version None)
Quarter: 2008Q1

REPORT INFORMATION
  Report Type: 
  Country: None (occurrence: None)
  Receive Date: 20080211
  Receipt Date: 20080211
  Transmission Date: 20080703
  Serious: Yes (Other)
  Sender: FDA-Public Use
  Company Number: None

PATIENT
  Age: 57 Year
  Sex: Female
  Weight: 72.5755 kg

DRUGS (3)
  1. SERTRALINE [Suspect]
     Indication: DISEASE RECURRENCE
     Dosage: 200 MG. ONCE PER DAY PO
     Route: 048
     Dates: start: 20070626, end: 20071128
  2. SERTRALINE [Suspect]
     Indication: MAJOR DEPRESSION
     Dosage: 200 MG. ONCE PER DAY PO
     Route: 048
     Dates: start: 20070626, end: 20071128
  3. SERTRALINE [Suspect]
     Indication: POST-TRAUMATIC STRESS DISORDER
     Dosage: 200 MG. ONCE PER DAY PO
     Route: 048
     Dates: start: 20070626, end: 20071128

REACTIONS (8)
  - COMMUNICATION DISORDER [None]
  - CRYING [None]
  - DRUG INEFFECTIVE [None]
  - EMOTIONAL DISORDER [None]
  - INSOMNIA [None]
  - PHARMACEUTICAL PRODUCT COMPLAINT [None]
  - THERAPEUTIC RESPONSE UNEXPECTED WITH DRUG SUBSTITUTION [None]
  - WEIGHT DECREASED [None]
